FAERS Safety Report 5502834-9 (Version None)
Quarter: 2007Q4

REPORT INFORMATION
  Report Type: 
  Country: None (occurrence: None)
  Receive Date: 20071031
  Receipt Date: 20071019
  Transmission Date: 20080405
  Serious: Yes (Hospitalization)
  Sender: FDA-Public Use
  Company Number: NO-AMGEN-US250355

PATIENT
  Sex: Male

DRUGS (6)
  1. ENBREL [Suspect]
     Indication: PSORIATIC ARTHROPATHY
     Route: 065
     Dates: start: 19990901, end: 20070810
  2. MABTHERA [Suspect]
     Indication: PSORIATIC ARTHROPATHY
     Route: 042
     Dates: start: 20061021, end: 20070626
  3. REMICADE [Suspect]
     Indication: PSORIATIC ARTHROPATHY
     Dosage: 300 MG PER BOOST
     Route: 065
     Dates: start: 20050901, end: 20051201
  4. HUMIRA [Suspect]
     Indication: PSORIATIC ARTHROPATHY
     Route: 058
     Dates: start: 20050113, end: 20050701
  5. PREDNISOLON [Concomitant]
     Indication: PSORIATIC ARTHROPATHY
     Dosage: VARIOUS DOSES
     Route: 065
     Dates: end: 20070810
  6. METHOTREXATE [Concomitant]
     Indication: PSORIATIC ARTHROPATHY
     Route: 065
     Dates: end: 20070810

REACTIONS (3)
  - DRUG EFFECT DECREASED [None]
  - DYSPHAGIA [None]
  - TONGUE NEOPLASM MALIGNANT STAGE UNSPECIFIED [None]
